FAERS Safety Report 13401244 (Version 3)
Quarter: 2017Q3

REPORT INFORMATION
  Report Type: Report from Study
  Country: None (occurrence: US)
  Receive Date: 20170404
  Receipt Date: 20170718
  Transmission Date: 20171127
  Serious: Yes (Hospitalization, Other)
  Sender: FDA-Public Use
  Company Number: US-ABBVIE-17K-163-1928210-00

PATIENT
  Age: 55 Year
  Sex: Male
  Weight: 86.26 kg

DRUGS (4)
  1. HUMIRA [Suspect]
     Active Substance: ADALIMUMAB
     Indication: PSORIASIS
     Route: 058
     Dates: start: 201705
  2. HUMIRA [Suspect]
     Active Substance: ADALIMUMAB
     Indication: PSORIATIC ARTHROPATHY
     Route: 058
     Dates: end: 201607
  3. IBUPROFEN. [Concomitant]
     Active Substance: IBUPROFEN
     Indication: PRODUCT USED FOR UNKNOWN INDICATION
  4. CEFEPIME [Suspect]
     Active Substance: CEFEPIME HYDROCHLORIDE
     Indication: URINARY TRACT INFECTION
     Route: 042
     Dates: start: 201607, end: 201609

REACTIONS (19)
  - Prostatitis [Recovered/Resolved]
  - Weight decreased [Not Recovered/Not Resolved]
  - Catheter site pain [Recovered/Resolved]
  - Urinary tract infection pseudomonal [Recovered/Resolved]
  - Urethritis noninfective [Recovered/Resolved]
  - Immunodeficiency [Unknown]
  - Arthritis [Recovered/Resolved]
  - Urinary tract infection pseudomonal [Recovered/Resolved]
  - Hypersomnia [Recovered/Resolved]
  - Urinary tract infection pseudomonal [Recovered/Resolved]
  - Prostatic fibrosis [Recovered/Resolved]
  - Fatigue [Recovered/Resolved]
  - Anxiety [Unknown]
  - Urinary tract infection staphylococcal [Recovered/Resolved]
  - Psoriasis [Recovered/Resolved]
  - Nausea [Recovered/Resolved]
  - Catheter site scar [Unknown]
  - Urethral haemorrhage [Recovered/Resolved]
  - Abdominal pain upper [Recovered/Resolved]

NARRATIVE: CASE EVENT DATE: 2016
